FAERS Safety Report 7685608-2 (Version None)
Quarter: 2011Q3

REPORT INFORMATION
  Report Type: 
  Country: None (occurrence: None)
  Receive Date: 20110815
  Receipt Date: 20110815
  Transmission Date: 20111222
  Serious: Yes (Other)
  Sender: FDA-Public Use
  Company Number: None

PATIENT
  Age: 74 Year
  Sex: Female
  Weight: 65.7716 kg

DRUGS (5)
  1. METFORMIN HCL [Concomitant]
  2. LISINOPRIL [Concomitant]
  3. FENOFIBRATE [Concomitant]
  4. PRAVASTATIN [Suspect]
     Indication: BLOOD CHOLESTEROL INCREASED
     Dosage: 1 TABLET ONCE A DAY
     Dates: start: 20110712, end: 20110720
  5. PRAVASTATIN [Suspect]
     Indication: BLOOD TRIGLYCERIDES INCREASED
     Dosage: 1 TABLET ONCE A DAY
     Dates: start: 20110712, end: 20110720

REACTIONS (4)
  - MYALGIA [None]
  - PAIN IN EXTREMITY [None]
  - MUSCULAR WEAKNESS [None]
  - GRIP STRENGTH DECREASED [None]
